FAERS Safety Report 10776004 (Version 1)
Quarter: 2015Q1

REPORT INFORMATION
  Report Type: Spontaneous
  Country: US (occurrence: US)
  Receive Date: 20150209
  Receipt Date: 20150209
  Transmission Date: 20150721
  Serious: Yes (Other)
  Sender: FDA-Public Use
  Company Number: US-PFIZER INC-2015048615

PATIENT
  Age: 64 Year
  Sex: Female

DRUGS (3)
  1. FLUCONAZOLE. [Suspect]
     Active Substance: FLUCONAZOLE
     Indication: FUNGAL INFECTION
     Dosage: UNK
  2. FLUCONAZOLE. [Interacting]
     Active Substance: FLUCONAZOLE
     Indication: CHOROIDITIS
  3. ONDANSETRON [Interacting]
     Active Substance: ONDANSETRON
     Indication: NAUSEA
     Dosage: 5 MG, UNK
     Route: 042

REACTIONS (3)
  - Drug interaction [Recovered/Resolved]
  - Cardiac arrest [Recovered/Resolved]
  - Torsade de pointes [Recovered/Resolved]
